FAERS Safety Report 6722518-9 (Version None)
Quarter: 2010Q2

REPORT INFORMATION
  Report Type: 
  Country: None (occurrence: None)
  Receive Date: 20100512
  Receipt Date: 20100429
  Transmission Date: 20101027
  Serious: No
  Sender: FDA-Public Use
  Company Number: ES-ELI_LILLY_AND_COMPANY-ES201005000944

PATIENT
  Sex: Male

DRUGS (2)
  1. CYMBALTA [Suspect]
     Dosage: 60 MG, UNKNOWN
     Route: 065
  2. CYMBALTA [Suspect]
     Dosage: 120 MG, UNKNOWN
     Route: 065

REACTIONS (1)
  - TRANSAMINASES INCREASED [None]
